FAERS Safety Report 25927990 (Version 2)
Quarter: 2025Q4

REPORT INFORMATION
  Report Type: Spontaneous
  Country: JP (occurrence: JP)
  Receive Date: 20251016
  Receipt Date: 20251201
  Transmission Date: 20260117
  Serious: Yes (Other)
  Sender: ASTELLAS
  Company Number: JP-ASTELLAS-2025-AER-056555

PATIENT
  Age: 80 Year
  Sex: Female

DRUGS (4)
  1. PROGRAF [Suspect]
     Active Substance: TACROLIMUS
     Indication: Rheumatoid arthritis
     Route: 048
  2. PROGRAF [Suspect]
     Active Substance: TACROLIMUS
     Route: 048
  3. PROGRAF [Suspect]
     Active Substance: TACROLIMUS
     Route: 048
     Dates: start: 202508
  4. PROGRAF [Suspect]
     Active Substance: TACROLIMUS
     Dosage: AFTER DINNER
     Route: 048

REACTIONS (5)
  - Drug level decreased [Unknown]
  - Spinal cord infarction [Unknown]
  - Lung disorder [Unknown]
  - Prescribed overdose [Unknown]
  - Off label use [Unknown]
